FAERS Safety Report 4283942-X (Version None)
Quarter: 2004Q1

REPORT INFORMATION
  Report Type: 
  Country: None (occurrence: None)
  Receive Date: 20040115
  Receipt Date: 20030423
  Transmission Date: 20041129
  Serious: Yes (Death)
  Sender: FDA-Public Use
  Company Number: NSADSS2003000231

PATIENT
  Age: 44 Year
  Sex: Female

DRUGS (1)
  1. DOXIL [Suspect]
     Indication: DRUG USE FOR UNKNOWN INDICATION
     Dosage: 40MG/M2 INTRAVENOUS DRIP
     Route: 041
     Dates: start: 20021122, end: 20021122

REACTIONS (1)
  - CONDITION AGGRAVATED [None]
